FAERS Safety Report 19215572 (Version 2)
Quarter: 2021Q2

REPORT INFORMATION
  Report Type: Other
  Country: CA (occurrence: CA)
  Receive Date: 20210505
  Receipt Date: 20210629
  Transmission Date: 20210717
  Serious: Yes (Death, Other)
  Sender: FDA-Public Use
  Company Number: CA-ROCHE-2318537

PATIENT
  Age: 23 Month
  Sex: Female

DRUGS (8)
  1. MYCOPHENOLATE MOFETIL. [Suspect]
     Active Substance: MYCOPHENOLATE MOFETIL
     Indication: IMMUNOSUPPRESSION
     Dosage: 2 DOSES
     Route: 065
  2. CYCLOSPORINE. [Suspect]
     Active Substance: CYCLOSPORINE
     Indication: IMMUNOSUPPRESSION
     Route: 065
  3. ANTITHYMOCYTE IMMUNOGLOBULIN [Suspect]
     Active Substance: THYMOCYTE IMMUNE GLOBULIN NOS
     Indication: IMMUNOSUPPRESSION
     Dosage: 2 DOSES
     Route: 065
  4. TACROLIMUS. [Suspect]
     Active Substance: TACROLIMUS
     Indication: IMMUNOSUPPRESSION
     Dosage: 2 DOSES
     Route: 065
  5. PREDNISONE. [Suspect]
     Active Substance: PREDNISONE
     Indication: IMMUNOSUPPRESSION
     Route: 065
  6. GANCICLOVIR. [Suspect]
     Active Substance: GANCICLOVIR
     Indication: PNEUMONIA CYTOMEGALOVIRAL
     Route: 048
  7. GANCICLOVIR. [Suspect]
     Active Substance: GANCICLOVIR
     Indication: PRODUCT USED FOR UNKNOWN INDICATION
     Route: 042
  8. ACYCLOVIR. [Concomitant]
     Active Substance: ACYCLOVIR

REACTIONS (8)
  - Off label use [Unknown]
  - Haemorrhage intracranial [Fatal]
  - Multiple organ dysfunction syndrome [Recovered/Resolved]
  - Epstein-Barr virus infection [Fatal]
  - Epstein-Barr virus associated lymphoproliferative disorder [Recovered/Resolved]
  - Gastric ulcer [Recovered/Resolved]
  - Infected neoplasm [Fatal]
  - Pneumonia cytomegaloviral [Unknown]
